FAERS Safety Report 6256140-8 (Version None)
Quarter: 2009Q3

REPORT INFORMATION
  Report Type: 
  Country: None (occurrence: None)
  Receive Date: 20090706
  Receipt Date: 20090624
  Transmission Date: 20100115
  Serious: Yes (Other)
  Sender: FDA-Public Use
  Company Number: PHHY2009IE25970

PATIENT
  Sex: Female

DRUGS (2)
  1. CLOZARIL [Suspect]
     Indication: SCHIZOPHRENIA
     Dosage: 100 MG AM, 175 MG PM
     Route: 048
     Dates: start: 20090529
  2. METHADONE [Interacting]

REACTIONS (5)
  - AFFECTIVE DISORDER [None]
  - DRUG INTERACTION [None]
  - DRUG WITHDRAWAL SYNDROME [None]
  - LACRIMATION INCREASED [None]
  - NAUSEA [None]
